FAERS Safety Report 4941149-4 (Version None)
Quarter: 2006Q1

REPORT INFORMATION
  Report Type: 
  Country: None (occurrence: None)
  Receive Date: 20060313
  Receipt Date: 20060303
  Transmission Date: 20060701
  Serious: Yes (Other)
  Sender: FDA-Public Use
  Company Number: AU-GLAXOSMITHKLINE-B0415390A

PATIENT
  Sex: Female

DRUGS (1)
  1. MALARONE [Suspect]

REACTIONS (1)
  - LIVER FUNCTION TEST ABNORMAL [None]
